FAERS Safety Report 4445248-5 (Version None)
Quarter: 2004Q3

REPORT INFORMATION
  Report Type: 
  Country: None (occurrence: None)
  Receive Date: 20040819
  Receipt Date: 20030827
  Transmission Date: 20050211
  Serious: Yes (Hospitalization)
  Sender: FDA-Public Use
  Company Number: APP200301813

PATIENT
  Age: 18 Year
  Sex: Female

DRUGS (2)
  1. MIDAZOLAM HYDROCHLORIDE [Suspect]
     Indication: SURGERY
     Dosage: 4.5 MG, INJECTION
     Dates: start: 20030819, end: 20030819
  2. ORAL CONTRACEPTIVES (ORAL CONTRACEPTIVE NOS) [Concomitant]

REACTIONS (1)
  - DRUG INEFFECTIVE [None]
